FAERS Safety Report 16424366 (Version 1)
Quarter: 2019Q2

REPORT INFORMATION
  Report Type: Spontaneous
  Country: CN (occurrence: CN)
  Receive Date: 20190613
  Receipt Date: 20190613
  Transmission Date: 20190711
  Serious: Yes (Other)
  Sender: FDA-Public Use
  Company Number: CN-ROCHE-2326246

PATIENT
  Age: 61 Year
  Sex: Female
  Weight: 50 kg

DRUGS (28)
  1. CYCLOPHOSPHAMIDE. [Concomitant]
     Active Substance: CYCLOPHOSPHAMIDE
     Dosage: ON DAY1
     Route: 065
     Dates: start: 20171004
  2. VINCRISTINE [Concomitant]
     Active Substance: VINCRISTINE
     Dosage: ON DAY1
     Route: 065
     Dates: start: 20180103
  3. DEXAMETHASONE. [Concomitant]
     Active Substance: DEXAMETHASONE
     Indication: DIFFUSE LARGE B-CELL LYMPHOMA
     Route: 065
     Dates: start: 20170707
  4. RITUXIMAB. [Suspect]
     Active Substance: RITUXIMAB
     Dosage: ON DAY 0
     Route: 065
     Dates: start: 20170723
  5. PREDNISONE. [Concomitant]
     Active Substance: PREDNISONE
     Route: 065
     Dates: start: 20170723
  6. CYCLOPHOSPHAMIDE. [Concomitant]
     Active Substance: CYCLOPHOSPHAMIDE
     Dosage: ON DAY 1
     Route: 065
     Dates: start: 20171116
  7. VINCRISTINE [Concomitant]
     Active Substance: VINCRISTINE
     Dosage: ON DAY1
     Route: 065
     Dates: start: 20171004
  8. VINCRISTINE [Concomitant]
     Active Substance: VINCRISTINE
     Dosage: ON DAY1
     Route: 065
     Dates: start: 20171116
  9. DOXORUBICIN [Concomitant]
     Active Substance: DOXORUBICIN
     Route: 065
     Dates: start: 20170723
  10. DOXORUBICIN [Concomitant]
     Active Substance: DOXORUBICIN
     Route: 065
     Dates: start: 20171004
  11. DOXORUBICIN [Concomitant]
     Active Substance: DOXORUBICIN
     Route: 065
     Dates: start: 20171116
  12. PREDNISONE. [Concomitant]
     Active Substance: PREDNISONE
     Dosage: FROM DAY1 TO DAY5
     Route: 065
     Dates: start: 20171004
  13. CYTARABINE. [Concomitant]
     Active Substance: CYTARABINE
     Indication: DIFFUSE LARGE B-CELL LYMPHOMA
     Route: 065
     Dates: start: 20170707
  14. RITUXIMAB. [Suspect]
     Active Substance: RITUXIMAB
     Indication: DIFFUSE LARGE B-CELL LYMPHOMA
     Dosage: ON DAY 0
     Route: 065
     Dates: start: 20170702
  15. METHOTREXATE. [Concomitant]
     Active Substance: METHOTREXATE
     Indication: DIFFUSE LARGE B-CELL LYMPHOMA
     Route: 065
     Dates: start: 20170707
  16. RITUXIMAB. [Suspect]
     Active Substance: RITUXIMAB
     Dosage: ON DAY 0
     Route: 065
     Dates: start: 20171004
  17. RITUXIMAB. [Suspect]
     Active Substance: RITUXIMAB
     Dosage: ON DAY 0
     Route: 065
     Dates: start: 20171116
  18. PREDNISONE. [Concomitant]
     Active Substance: PREDNISONE
     Indication: DIFFUSE LARGE B-CELL LYMPHOMA
     Route: 065
     Dates: start: 20170702
  19. RITUXIMAB. [Suspect]
     Active Substance: RITUXIMAB
     Dosage: ON DAY 0
     Route: 065
     Dates: start: 20180103
  20. CYCLOPHOSPHAMIDE. [Concomitant]
     Active Substance: CYCLOPHOSPHAMIDE
     Dosage: ON DAY1
     Route: 065
     Dates: start: 20180103
  21. DOXORUBICIN [Concomitant]
     Active Substance: DOXORUBICIN
     Indication: DIFFUSE LARGE B-CELL LYMPHOMA
     Route: 065
     Dates: start: 20170702
  22. DOXORUBICIN [Concomitant]
     Active Substance: DOXORUBICIN
     Route: 065
     Dates: start: 20180103
  23. PREDNISONE. [Concomitant]
     Active Substance: PREDNISONE
     Dosage: FROM DAY1 TO DAY5
     Route: 065
     Dates: start: 20180103
  24. CYCLOPHOSPHAMIDE. [Concomitant]
     Active Substance: CYCLOPHOSPHAMIDE
     Indication: DIFFUSE LARGE B-CELL LYMPHOMA
     Route: 065
     Dates: start: 20170702
  25. CYCLOPHOSPHAMIDE. [Concomitant]
     Active Substance: CYCLOPHOSPHAMIDE
     Dosage: ON DAY1
     Route: 065
     Dates: start: 20170723
  26. VINCRISTINE [Concomitant]
     Active Substance: VINCRISTINE
     Indication: DIFFUSE LARGE B-CELL LYMPHOMA
     Route: 065
     Dates: start: 20170702
  27. VINCRISTINE [Concomitant]
     Active Substance: VINCRISTINE
     Route: 065
     Dates: start: 20170723
  28. PREDNISONE. [Concomitant]
     Active Substance: PREDNISONE
     Dosage: FROM DAY1 TO DAY5
     Route: 065
     Dates: start: 20171116

REACTIONS (10)
  - Bone marrow failure [Recovering/Resolving]
  - Cough [Unknown]
  - Eyelid ptosis [Recovered/Resolved]
  - Pyrexia [Unknown]
  - Bronchiectasis [Unknown]
  - CSF test abnormal [Recovering/Resolving]
  - Pericardial effusion [Unknown]
  - Productive cough [Unknown]
  - Wheezing [Unknown]
  - Mouth ulceration [Unknown]
